FAERS Safety Report 17262184 (Version 2)
Quarter: 2020Q1

REPORT INFORMATION
  Report Type: Spontaneous
  Country: US (occurrence: US)
  Receive Date: 20200113
  Receipt Date: 20200213
  Transmission Date: 20200409
  Serious: No
  Sender: FDA-Public Use
  Company Number: US-BAYER-2020-004073

PATIENT
  Age: 82 Year
  Sex: Male

DRUGS (2)
  1. STIVARGA [Suspect]
     Active Substance: REGORAFENIB
     Dosage: UNK
     Dates: start: 20191215, end: 20200104
  2. STIVARGA [Suspect]
     Active Substance: REGORAFENIB
     Dosage: UNK

REACTIONS (4)
  - Pain in extremity [Recovered/Resolved]
  - Blood pressure abnormal [None]
  - Blister [Recovered/Resolved]
  - Peripheral swelling [Recovering/Resolving]

NARRATIVE: CASE EVENT DATE: 201912
